FAERS Safety Report 20573079 (Version 1)
Quarter: 2022Q1

REPORT INFORMATION
  Report Type: Report from Study
  Country: AU (occurrence: AU)
  Receive Date: 20220309
  Receipt Date: 20220309
  Transmission Date: 20220423
  Serious: Yes (Hospitalization)
  Sender: FDA-Public Use
  Company Number: AU-MYLANLABS-2022M1018108

PATIENT
  Age: 55 Year
  Sex: Male
  Weight: 125 kg

DRUGS (12)
  1. NICORANDIL [Interacting]
     Active Substance: NICORANDIL
     Indication: Product used for unknown indication
     Dosage: 70 MILLIGRAM
     Route: 048
  2. SIMVASTATIN [Interacting]
     Active Substance: SIMVASTATIN
     Indication: Product used for unknown indication
     Dosage: 280 MILLIGRAM
     Route: 048
  3. TEMAZEPAM [Interacting]
     Active Substance: TEMAZEPAM
     Indication: Product used for unknown indication
     Dosage: 140 MILLIGRAM
     Route: 048
  4. ASPIRIN [Interacting]
     Active Substance: ASPIRIN
     Indication: Product used for unknown indication
     Dosage: 700 MILLIGRAM
     Route: 048
  5. OMEPRAZOLE [Interacting]
     Active Substance: OMEPRAZOLE
     Indication: Product used for unknown indication
     Dosage: 560 MILLIGRAM
     Route: 048
  6. BISOPROLOL [Interacting]
     Active Substance: BISOPROLOL
     Indication: Product used for unknown indication
     Dosage: 35 MILLIGRAM
     Route: 048
  7. FUROSEMIDE [Interacting]
     Active Substance: FUROSEMIDE
     Indication: Product used for unknown indication
     Dosage: 840 MILLIGRAM
     Route: 048
  8. SERTRALINE [Interacting]
     Active Substance: SERTRALINE HYDROCHLORIDE
     Indication: Product used for unknown indication
     Dosage: 700 MILLIGRAM
     Route: 048
  9. FENOFIBRATE [Interacting]
     Active Substance: FENOFIBRATE
     Indication: Product used for unknown indication
     Dosage: 1015 MILLIGRAM
     Route: 048
  10. ISOSORBIDE MONONITRATE [Interacting]
     Active Substance: ISOSORBIDE MONONITRATE
     Indication: Product used for unknown indication
     Dosage: 840 MILLIGRAM
     Route: 048
  11. RAMIPRIL [Interacting]
     Active Substance: RAMIPRIL
     Indication: Product used for unknown indication
     Dosage: 70 MILLIGRAM
     Route: 048
  12. POTASSIUM CHLORIDE [Interacting]
     Active Substance: POTASSIUM CHLORIDE
     Indication: Product used for unknown indication
     Dosage: 8400 MILLIGRAM (SUSTAINED-RELEASE TABLET)
     Route: 048

REACTIONS (4)
  - Drug interaction [Unknown]
  - Overdose [Unknown]
  - Toxicity to various agents [Unknown]
  - Gastrointestinal disorder [Unknown]
